FAERS Safety Report 6327331-2 (Version None)
Quarter: 2009Q3

REPORT INFORMATION
  Report Type: 
  Country: None (occurrence: None)
  Receive Date: 20090825
  Receipt Date: 20090820
  Transmission Date: 20100115
  Serious: Yes (Other)
  Sender: FDA-Public Use
  Company Number: FR-BRISTOL-MYERS SQUIBB COMPANY-14749949

PATIENT
  Sex: Male

DRUGS (2)
  1. ORENCIA [Suspect]
     Indication: RHEUMATOID ARTHRITIS
     Dosage: FIFTH INFUSION OF ORENCIA ON 25-JUL-2009
  2. CORTANCYL [Concomitant]

REACTIONS (1)
  - THROMBOCYTOPENIA [None]
